FAERS Safety Report 7819607-4 (Version None)
Quarter: 2011Q4

REPORT INFORMATION
  Report Type: 
  Country: None (occurrence: None)
  Receive Date: 20111018
  Receipt Date: 20111018
  Transmission Date: 20120403
  Serious: Yes (Other)
  Sender: FDA-Public Use
  Company Number: None

PATIENT
  Sex: Male
  Weight: 78 kg

DRUGS (2)
  1. REQUIP [Suspect]
     Indication: RESTLESS LEGS SYNDROME
     Dosage: 0.25MG - 2MG
     Route: 048
  2. REQUIP [Concomitant]
     Indication: RESTLESS LEGS SYNDROME
     Dosage: 2MG - 0.25MG - 0.00MG
     Route: 048

REACTIONS (1)
  - ERECTILE DYSFUNCTION [None]
